FAERS Safety Report 16321147 (Version 6)
Quarter: 2019Q3

REPORT INFORMATION
  Report Type: Report from Study
  Country: MX (occurrence: MX)
  Receive Date: 20190516
  Receipt Date: 20190826
  Transmission Date: 20191004
  Serious: Yes (Other)
  Sender: FDA-Public Use
  Company Number: MX-ELI_LILLY_AND_COMPANY-MX201904016475

PATIENT
  Age: 62 Year
  Sex: Male

DRUGS (4)
  1. 5 FLUOROURACIL FLUOROURACIL [Concomitant]
     Indication: COLON CANCER METASTATIC
  2. OXALIPLATIN. [Concomitant]
     Active Substance: OXALIPLATIN
     Indication: COLON CANCER METASTATIC
  3. CETUXIMAB. [Suspect]
     Active Substance: CETUXIMAB
     Dosage: 500 MG, 2/M
     Route: 065
     Dates: start: 20190418
  4. CETUXIMAB. [Suspect]
     Active Substance: CETUXIMAB
     Indication: COLON CANCER METASTATIC
     Dosage: 800 MG, 2/M
     Route: 065
     Dates: start: 20190218

REACTIONS (4)
  - Platelet count decreased [Recovered/Resolved]
  - Haemoglobin decreased [Recovered/Resolved]
  - Deep vein thrombosis [Recovered/Resolved]
  - Off label use [Unknown]

NARRATIVE: CASE EVENT DATE: 201904
